FAERS Safety Report 5257726-X (Version None)
Quarter: 2007Q1

REPORT INFORMATION
  Report Type: 
  Country: None (occurrence: None)
  Receive Date: 20070307
  Receipt Date: 20070227
  Transmission Date: 20070707
  Serious: Yes (Hospitalization)
  Sender: FDA-Public Use
  Company Number: US-JNJFOC-20070300110

PATIENT
  Sex: Male
  Weight: 97.52 kg

DRUGS (9)
  1. DURAGESIC-100 [Suspect]
     Indication: PAIN MANAGEMENT
     Route: 062
  2. WARFARIN SODIUM [Concomitant]
     Indication: ANTICOAGULANT THERAPY
     Route: 048
  3. LIPITOR [Concomitant]
     Indication: BLOOD CHOLESTEROL
     Route: 048
  4. CELEBREX [Concomitant]
     Indication: PAIN
     Route: 048
  5. TOPROL-XL [Concomitant]
     Indication: BLOOD PRESSURE
     Route: 048
  6. NORVASC [Concomitant]
     Indication: BLOOD PRESSURE
     Route: 048
  7. FLOMAX [Concomitant]
     Route: 048
  8. SOMA [Concomitant]
     Indication: PAIN
     Route: 048
  9. HYZAAR [Concomitant]
     Indication: BLOOD PRESSURE
     Route: 048

REACTIONS (3)
  - DRUG INEFFECTIVE [None]
  - HIP FRACTURE [None]
  - WRONG TECHNIQUE IN DRUG USAGE PROCESS [None]
